FAERS Safety Report 24651382 (Version 1)
Quarter: 2024Q4

REPORT INFORMATION
  Report Type: Spontaneous
  Country: BE (occurrence: BE)
  Receive Date: 20241122
  Receipt Date: 20241122
  Transmission Date: 20250114
  Serious: Yes (Other)
  Sender: ALK-ABELLO
  Company Number: BE-ALK-ABELLO A/S-2024AA004312

PATIENT

DRUGS (1)
  1. ACARIZAX [Suspect]
     Active Substance: DERMATOPHAGOIDES FARINAE\DERMATOPHAGOIDES PTERONYSSINUS
     Indication: Asthma
     Dosage: 1 TABLET
     Dates: start: 20240603, end: 20240704

REACTIONS (10)
  - Throat irritation [Recovered/Resolved]
  - Urticaria [Unknown]
  - Dyspnoea [Recovered/Resolved]
  - Dysphagia [Recovered/Resolved]
  - Pharyngeal oedema [Recovered/Resolved]
  - Nausea [Unknown]
  - Vomiting [Unknown]
  - Oedema mucosal [Recovered/Resolved]
  - Oral mucosal erythema [Recovered/Resolved]
  - Forced expiratory volume abnormal [Recovered/Resolved]

NARRATIVE: CASE EVENT DATE: 20240603
